FAERS Safety Report 6401218-9 (Version None)
Quarter: 2009Q4

REPORT INFORMATION
  Report Type: 
  Country: None (occurrence: None)
  Receive Date: 20091015
  Receipt Date: 20091005
  Transmission Date: 20100525
  Serious: Yes (Death, Hospitalization)
  Sender: FDA-Public Use
  Company Number: JP-ROCHE-661173

PATIENT
  Age: 56 Year
  Sex: Female

DRUGS (2)
  1. MYCOPHENOLATE MOFETIL [Suspect]
     Route: 065
  2. PREDNISOLONE [Suspect]
     Route: 065

REACTIONS (2)
  - DEATH [None]
  - PNEUMOCYSTIS JIROVECI PNEUMONIA [None]
